FAERS Safety Report 12832440 (Version 1)
Quarter: 2016Q4

REPORT INFORMATION
  Report Type: Spontaneous
  Country: US (occurrence: US)
  Receive Date: 20161010
  Receipt Date: 20161010
  Transmission Date: 20170207
  Serious: No
  Sender: FDA-Public Use
  Company Number: US-JAZZ-2016-US-013302

PATIENT
  Sex: Male

DRUGS (19)
  1. XYREM [Suspect]
     Active Substance: SODIUM OXYBATE
     Indication: NARCOLEPSY
     Dosage: 3 G, BID
     Route: 048
     Dates: start: 201506
  2. LYRICA [Concomitant]
     Active Substance: PREGABALIN
  3. FLEXERIL [Concomitant]
     Active Substance: CYCLOBENZAPRINE HYDROCHLORIDE
  4. LANTUS [Concomitant]
     Active Substance: INSULIN GLARGINE
  5. MEDROL [Concomitant]
     Active Substance: METHYLPREDNISOLONE
  6. TOPAMAX [Concomitant]
     Active Substance: TOPIRAMATE
  7. SYNTHROID [Concomitant]
     Active Substance: LEVOTHYROXINE SODIUM
  8. XYREM [Suspect]
     Active Substance: SODIUM OXYBATE
     Indication: CATAPLEXY
  9. NUVIGIL [Concomitant]
     Active Substance: ARMODAFINIL
  10. BACLOFEN. [Concomitant]
     Active Substance: BACLOFEN
  11. METHADONE HCL [Concomitant]
     Active Substance: METHADONE HYDROCHLORIDE
  12. AMARYL [Concomitant]
     Active Substance: GLIMEPIRIDE
  13. KLONOPIN [Concomitant]
     Active Substance: CLONAZEPAM
  14. METHADONE [Suspect]
     Active Substance: METHADONE HYDROCHLORIDE
     Dosage: UNK (DOSE DECREASED)
  15. CLONAZEPAM. [Concomitant]
     Active Substance: CLONAZEPAM
  16. NOVOLOG [Concomitant]
     Active Substance: INSULIN ASPART
  17. METHADONE [Suspect]
     Active Substance: METHADONE HYDROCHLORIDE
     Indication: PRODUCT USED FOR UNKNOWN INDICATION
     Dosage: UNK
     Dates: start: 20151216
  18. CLONIDINE HCL [Concomitant]
     Active Substance: CLONIDINE HYDROCHLORIDE
  19. CYMBALTA [Concomitant]
     Active Substance: DULOXETINE HYDROCHLORIDE

REACTIONS (2)
  - Nausea [Unknown]
  - Dermatitis allergic [Unknown]
